FAERS Safety Report 10157689 (Version 2)
Quarter: 2014Q3

REPORT INFORMATION
  Report Type: Report from Study
  Country: GB (occurrence: GB)
  Receive Date: 20140507
  Receipt Date: 20140822
  Transmission Date: 20150326
  Serious: Yes (Hospitalization, Other)
  Sender: FDA-Public Use
  Company Number: GB-CELGENEUS-167-50794-14044990

PATIENT
  Age: 81 Year
  Sex: Male
  Weight: 72.2 kg

DRUGS (11)
  1. SIMVASTATIN. [Concomitant]
     Active Substance: SIMVASTATIN
     Indication: MYOCARDIAL ISCHAEMIA
     Route: 065
     Dates: end: 20140423
  2. DUTASTERIDE [Concomitant]
     Active Substance: DUTASTERIDE
     Indication: BENIGN PROSTATIC HYPERPLASIA
     Route: 065
     Dates: end: 20140423
  3. BISOPROLOL [Concomitant]
     Active Substance: BISOPROLOL
     Indication: MYOCARDIAL ISCHAEMIA
     Route: 065
     Dates: end: 20140423
  4. VIDAZA [Suspect]
     Active Substance: AZACITIDINE
     Dosage: 140 MILLIGRAM
     Route: 058
     Dates: end: 20140423
  5. VIDAZA [Suspect]
     Active Substance: AZACITIDINE
     Dosage: 140 MILLIGRAM
     Route: 058
     Dates: start: 20140520
  6. MONOMIL [Concomitant]
     Indication: MYOCARDIAL ISCHAEMIA
     Route: 065
     Dates: end: 20140423
  7. ASPIRINE [Concomitant]
     Active Substance: ASPIRIN
     Indication: MYOCARDIAL ISCHAEMIA
     Route: 065
     Dates: end: 20140423
  8. ALFUZOSIN [Concomitant]
     Active Substance: ALFUZOSIN
     Indication: URINARY RETENTION
     Route: 065
     Dates: end: 20140423
  9. ONDASETRON [Concomitant]
     Indication: ANTIEMETIC SUPPORTIVE CARE
     Route: 065
     Dates: start: 20140317, end: 20140423
  10. TRAMADOL [Concomitant]
     Active Substance: TRAMADOL
     Indication: ANALGESIC THERAPY
     Route: 065
     Dates: end: 20140423
  11. VIDAZA [Suspect]
     Active Substance: AZACITIDINE
     Indication: ACUTE MYELOID LEUKAEMIA
     Dosage: 140 MILLIGRAM
     Route: 058
     Dates: start: 20140317

REACTIONS (1)
  - Thrombophlebitis superficial [Unknown]

NARRATIVE: CASE EVENT DATE: 20140424
